FAERS Safety Report 25491564 (Version 1)
Quarter: 2025Q2

REPORT INFORMATION
  Report Type: Report from Study
  Country: US (occurrence: US)
  Receive Date: 20250629
  Receipt Date: 20250629
  Transmission Date: 20250717
  Serious: Yes (Other)
  Sender: ABBVIE
  Company Number: US-ABBVIE-6170245

PATIENT
  Age: 56 Year
  Sex: Male

DRUGS (1)
  1. RINVOQ [Suspect]
     Active Substance: UPADACITINIB
     Indication: Dermatitis atopic
     Route: 048
     Dates: start: 20250224

REACTIONS (7)
  - Blindness transient [Not Recovered/Not Resolved]
  - Rash [Recovered/Resolved]
  - Pruritus [Unknown]
  - Rash [Recovering/Resolving]
  - Skin burning sensation [Recovering/Resolving]
  - Therapeutic product effect incomplete [Recovering/Resolving]
  - Miliaria [Not Recovered/Not Resolved]

NARRATIVE: CASE EVENT DATE: 20250101
